FAERS Safety Report 7560189-2 (Version None)
Quarter: 2011Q2

REPORT INFORMATION
  Report Type: 
  Country: None (occurrence: None)
  Receive Date: 20110621
  Receipt Date: 20110603
  Transmission Date: 20111010
  Serious: Yes (Death, Hospitalization)
  Sender: FDA-Public Use
  Company Number: B0698877A

PATIENT
  Age: 67 Year
  Sex: Female
  Weight: 56.8 kg

DRUGS (7)
  1. AVANDIA [Suspect]
     Dosage: 4MG PER DAY
     Route: 048
     Dates: start: 20020606, end: 20051001
  2. TIMOLOL MALEATE [Concomitant]
  3. ARIMIDEX [Concomitant]
  4. PEPCID [Concomitant]
  5. METOPROLOL TARTRATE [Concomitant]
  6. PREDNISOLONE [Concomitant]
  7. NEPHROCAPS [Concomitant]

REACTIONS (6)
  - CORONARY ARTERY BYPASS [None]
  - ATRIAL FIBRILLATION [None]
  - VENTRICULAR TACHYCARDIA [None]
  - ANGINA UNSTABLE [None]
  - CARDIAC FAILURE CONGESTIVE [None]
  - EMBOLIC STROKE [None]
